FAERS Safety Report 7868825-8 (Version None)
Quarter: 2011Q4

REPORT INFORMATION
  Report Type: 
  Country: None (occurrence: None)
  Receive Date: 20111026
  Receipt Date: 20111026
  Transmission Date: 20120403
  Serious: Yes (Hospitalization)
  Sender: FDA-Public Use
  Company Number: None

PATIENT
  Sex: Male
  Weight: 65.8 kg

DRUGS (3)
  1. IFOSFAMIDE [Suspect]
     Dosage: 24.775 G
  2. MESNA [Suspect]
     Dosage: 24.75 G
  3. ETOPOSIDE [Suspect]
     Dosage: 875 MG

REACTIONS (9)
  - WHITE BLOOD CELL COUNT DECREASED [None]
  - FATIGUE [None]
  - NAUSEA [None]
  - HYPOKALAEMIA [None]
  - PYREXIA [None]
  - VOMITING [None]
  - HYPOTENSION [None]
  - HEADACHE [None]
  - PNEUMONIA [None]
